APPROVED DRUG PRODUCT: METHADOSE
Active Ingredient: METHADONE HYDROCHLORIDE
Strength: 10MG
Dosage Form/Route: TABLET;ORAL
Application: A040050 | Product #002
Applicant: SPECGX LLC
Approved: Apr 15, 1993 | RLD: No | RS: No | Type: DISCN